FAERS Safety Report 7222724-3 (Version None)
Quarter: 2011Q1

REPORT INFORMATION
  Report Type: 
  Country: None (occurrence: None)
  Receive Date: 20110112
  Receipt Date: 20101215
  Transmission Date: 20110831
  Serious: Yes (Other)
  Sender: FDA-Public Use
  Company Number: PHHY2010NL85346

PATIENT
  Sex: Male

DRUGS (3)
  1. ZOMETA [Suspect]
     Dosage: 4MG/5ML
     Dates: start: 20101102
  2. ZOMETA [Suspect]
     Dosage: 4MG/5ML
     Dates: start: 20101202
  3. ZOMETA [Suspect]
     Indication: PROSTATE CANCER METASTATIC
     Dosage: 4MG/5ML
     Dates: start: 20100707

REACTIONS (2)
  - JAW DISORDER [None]
  - PAIN IN JAW [None]
